FAERS Safety Report 10494927 (Version 1)
Quarter: 2014Q4

REPORT INFORMATION
  Report Type: Spontaneous
  Country: US (occurrence: None)
  Receive Date: 20141001
  Receipt Date: 20141001
  Transmission Date: 20150528
  Serious: Yes (Hospitalization)
  Sender: FDA-Public Use
  Company Number: VAL_03445_2014

PATIENT
  Age: 5 Year
  Sex: Male

DRUGS (5)
  1. PREVACID [Concomitant]
     Active Substance: LANSOPRAZOLE
  2. CALCITRIOL. [Suspect]
     Active Substance: CALCITRIOL
     Dosage: DF, ORAL
     Route: 048
  3. BICTIRA/00586801 [Concomitant]
     Route: 058
  4. NUTROPIN AQ [Suspect]
     Active Substance: SOMATROPIN
     Indication: CHRONIC KIDNEY DISEASE
     Route: 058
  5. RENEVELA [Concomitant]

REACTIONS (6)
  - Haemoglobin decreased [None]
  - Growth retardation [None]
  - Red blood cell count decreased [None]
  - Blood phosphorus increased [None]
  - Blood parathyroid hormone increased [None]
  - Renal failure [None]

NARRATIVE: CASE EVENT DATE: 201101
